FAERS Safety Report 6401813-7 (Version None)
Quarter: 2009Q4

REPORT INFORMATION
  Report Type: 
  Country: None (occurrence: None)
  Receive Date: 20091013
  Receipt Date: 20091013
  Transmission Date: 20100525
  Serious: Yes (Life-Threatening, Hospitalization)
  Sender: FDA-Public Use
  Company Number: None

PATIENT
  Sex: Male
  Weight: 96.2 kg

DRUGS (2)
  1. ABILIFY [Suspect]
     Indication: BIPOLAR DISORDER
     Dosage: 5 TABS TOTAL DAY PO
     Route: 048
     Dates: start: 20090101, end: 20091004
  2. LAMICTAL [Suspect]
     Indication: BIPOLAR DISORDER
     Dosage: 1 TAB DAY PO
     Route: 048
     Dates: start: 20090101, end: 20091004

REACTIONS (2)
  - AGRANULOCYTOSIS [None]
  - INFECTION [None]
